FAERS Safety Report 14326182 (Version 9)
Quarter: 2019Q3

REPORT INFORMATION
  Report Type: Spontaneous
  Country: US (occurrence: US)
  Receive Date: 20171227
  Receipt Date: 20190822
  Transmission Date: 20191004
  Serious: No
  Sender: FDA-Public Use
  Company Number: US-PFIZER INC-2017544766

PATIENT
  Age: 75 Year
  Sex: Female

DRUGS (3)
  1. XELJANZ [Suspect]
     Active Substance: TOFACITINIB CITRATE
     Indication: RHEUMATOID ARTHRITIS
     Dosage: 5MG TWICE A DAY
     Dates: start: 20170818, end: 201712
  2. XELJANZ [Suspect]
     Active Substance: TOFACITINIB CITRATE
     Dosage: 5MG TWICE A DAY
     Route: 048
     Dates: start: 201802
  3. METHOTREXATE. [Concomitant]
     Active Substance: METHOTREXATE
     Dosage: UNK

REACTIONS (9)
  - Neuralgia [Not Recovered/Not Resolved]
  - Back pain [Unknown]
  - Herpes zoster [Recovering/Resolving]
  - Rash [Recovered/Resolved]
  - Abdominal pain [Not Recovered/Not Resolved]
  - Infection [Unknown]
  - Product dose omission [Unknown]
  - Hypertension [Recovered/Resolved]
  - Asthenia [Recovering/Resolving]

NARRATIVE: CASE EVENT DATE: 20171206
